FAERS Safety Report 5311402-3 (Version None)
Quarter: 2007Q2

REPORT INFORMATION
  Report Type: 
  Country: None (occurrence: None)
  Receive Date: 20070430
  Receipt Date: 20070423
  Transmission Date: 20071010
  Serious: Yes (Life-Threatening, Hospitalization)
  Sender: FDA-Public Use
  Company Number: ES-AVENTIS-200711983EU

PATIENT
  Age: 59 Year
  Sex: Male

DRUGS (12)
  1. SEGURIL                            /00032601/ [Suspect]
     Dosage: DOSE: UNKNOWN DOSAGE
     Route: 048
     Dates: start: 20070315, end: 20070322
  2. ALDACTONE [Suspect]
     Dosage: DOSE: UNKNOWN DOSAGE
     Route: 048
     Dates: start: 20070315, end: 20070322
  3. NSAID'S [Suspect]
     Dosage: DOSE: UNKNOWN DOSAGE
     Route: 048
     Dates: start: 20070311, end: 20070101
  4. ENALAPRIL [Concomitant]
     Route: 048
     Dates: start: 20070311
  5. SUSTIVA [Concomitant]
     Route: 048
  6. KALETRA [Concomitant]
     Route: 048
  7. SEPTRIN [Concomitant]
     Dosage: DOSE: 800/160
     Route: 048
  8. COROPRES [Concomitant]
     Route: 048
  9. UNIKET [Concomitant]
     Route: 048
  10. ADIRO [Concomitant]
  11. ZIAGEN [Concomitant]
  12. OMEPRAZOLE [Concomitant]

REACTIONS (2)
  - HYPERKALAEMIA [None]
  - RENAL FAILURE ACUTE [None]
